FAERS Safety Report 17169647 (Version 2)
Quarter: 2020Q1

REPORT INFORMATION
  Report Type: Report from Study
  Country: US (occurrence: US)
  Receive Date: 20191218
  Receipt Date: 20200116
  Transmission Date: 20200409
  Serious: No
  Sender: FDA-Public Use
  Company Number: NVSC2019US072921

PATIENT
  Age: 31 Year
  Sex: Female

DRUGS (2)
  1. ENTRESTO [Suspect]
     Active Substance: SACUBITRIL\VALSARTAN
     Indication: CARDIAC FAILURE CHRONIC
     Dosage: 100 UNK (49 MG SACUBITRIL/51 MG VALSARTAN)
     Route: 048
  2. ENTRESTO [Suspect]
     Active Substance: SACUBITRIL\VALSARTAN
     Dosage: 1 DF, (97 MG SACUBITRIL, 103 MG VALSARTAN), BID
     Route: 048
     Dates: start: 201911

REACTIONS (3)
  - Gastrooesophageal reflux disease [Unknown]
  - Dizziness postural [Unknown]
  - Hypotension [Unknown]

NARRATIVE: CASE EVENT DATE: 201912
